FAERS Safety Report 25484843 (Version 3)
Quarter: 2025Q4

REPORT INFORMATION
  Report Type: Spontaneous
  Country: CA (occurrence: CA)
  Receive Date: 20250626
  Receipt Date: 20251029
  Transmission Date: 20260118
  Serious: Yes (Death, Life-Threatening, Hospitalization, Disabling, Congenital Anomaly, Other)
  Sender: ANI
  Company Number: CA-ANIPHARMA-2025-CA-002040

PATIENT
  Age: 40 Year
  Sex: Female
  Weight: 96 kg

DRUGS (26)
  1. CANDESARTAN CILEXETIL [Suspect]
     Active Substance: CANDESARTAN CILEXETIL
     Indication: Rheumatoid arthritis
  2. TRAZODONE [Suspect]
     Active Substance: TRAZODONE HYDROCHLORIDE
  3. TRETINOIN [Suspect]
     Active Substance: TRETINOIN
  4. TRIAMCINOLONE [Suspect]
     Active Substance: TRIAMCINOLONE
     Dosage: 25 MILLIGRAM
  5. HYRIMOZ [Suspect]
     Active Substance: ADALIMUMAB-ADAZ
     Dosage: UNK; 40 MILLIGRAM
  6. APREMILAST [Suspect]
     Active Substance: APREMILAST
  7. ATOMOXETINE HYDROCHLORIDE [Suspect]
     Active Substance: ATOMOXETINE HYDROCHLORIDE
  8. CELECOXIB [Suspect]
     Active Substance: CELECOXIB
     Dosage: 1 DOSAGE FORM, QD; 2 DOSAGE FORM, QD;
  9. HYDROCORTISONE [Suspect]
     Active Substance: HYDROCORTISONE
  10. LEFLUNOMIDE [Suspect]
     Active Substance: LEFLUNOMIDE
     Dosage: 10 MILLIGRAM; 20 MILLIGRAM
  11. TOPIRAMATE [Suspect]
     Active Substance: TOPIRAMATE
     Dosage: 25 MILLIGRAM, QD; 25 MILLIGRAM; 3 MILLIGRAM
  12. PANTOPRAZOLE SODIUM [Suspect]
     Active Substance: PANTOPRAZOLE SODIUM
  13. HYDROMORPHONE [Suspect]
     Active Substance: HYDROMORPHONE
  14. CALCIUM GLUBIONATE [Suspect]
     Active Substance: CALCIUM GLUBIONATE
  15. BUPRENORPHINE [Suspect]
     Active Substance: BUPRENORPHINE
  16. BETAMETHASONE SODIUM PHOSPHATE [Suspect]
     Active Substance: BETAMETHASONE SODIUM PHOSPHATE
  17. RITUXIMAB [Suspect]
     Active Substance: RITUXIMAB
  18. PREDNISONE [Suspect]
     Active Substance: PREDNISONE
     Dosage: 5 MILLIGRAM
  19. CODEINE [Suspect]
     Active Substance: CODEINE
  20. CALCIUM CARBONATE [Suspect]
     Active Substance: CALCIUM CARBONATE
  21. METHOTREXATE [Suspect]
     Active Substance: METHOTREXATE
     Dosage: UNK; 1MG; 20MG QD; 25MG Q12H; 25MG 1/WK; 15MG 1/WK; 25MG; 40MG; 150MG; 225MG; 50MG QD
  22. TRAMADOL [Suspect]
     Active Substance: TRAMADOL
  23. PHENYLEPHRINE [Suspect]
     Active Substance: PHENYLEPHRINE
     Dosage: 10 MILLIGRAM
  24. CELECOXIB [Suspect]
     Active Substance: CELECOXIB
     Dosage: 1 DOSAGE FORM, QD; 2 DOSAGE FORM, QD
  25. SODIUM AUROTIOSULFATE [Suspect]
     Active Substance: SODIUM AUROTIOSULFATE
  26. TOPIRAMATE [Suspect]
     Active Substance: TOPIRAMATE

REACTIONS (9)
  - Abdominal distension [Not Recovered/Not Resolved]
  - Chest pain [Not Recovered/Not Resolved]
  - Exposure during pregnancy [Not Recovered/Not Resolved]
  - Maternal exposure during pregnancy [Not Recovered/Not Resolved]
  - Product use in unapproved indication [Not Recovered/Not Resolved]
  - Asthma [Not Recovered/Not Resolved]
  - Autoimmune disorder [Not Recovered/Not Resolved]
  - Breast cancer stage II [Not Recovered/Not Resolved]
  - Bone erosion [Not Recovered/Not Resolved]
